FAERS Safety Report 4810921-3 (Version None)
Quarter: 2005Q4

REPORT INFORMATION
  Report Type: 
  Country: None (occurrence: None)
  Receive Date: 20051025
  Receipt Date: 20051025
  Transmission Date: 20060501
  Serious: Yes (Death, Hospitalization)
  Sender: FDA-Public Use
  Company Number: None

PATIENT
  Sex: Male
  Weight: 95 kg

DRUGS (3)
  1. PACLITAXEL [Suspect]
     Indication: OESOPHAGEAL ADENOCARCINOMA
     Dosage: SEE IMAGE
     Dates: start: 20040720, end: 20040817
  2. CISPLATIN [Suspect]
     Dosage: SEE IMAGE
     Dates: start: 20040720, end: 20040817
  3. RADIATION [Suspect]
     Dosage: SEE IMAGE

REACTIONS (12)
  - BLOOD PRESSURE INCREASED [None]
  - CARDIO-RESPIRATORY ARREST [None]
  - DEEP VEIN THROMBOSIS [None]
  - DYSPHAGIA [None]
  - DYSPNOEA [None]
  - DYSPNOEA EXERTIONAL [None]
  - FALL [None]
  - FATIGUE [None]
  - HEAD INJURY [None]
  - HYPOTENSION [None]
  - LACERATION [None]
  - PULMONARY EMBOLISM [None]
